FAERS Safety Report 10396856 (Version 2)
Quarter: 2014Q4

REPORT INFORMATION
  Report Type: Report from Study
  Country: US (occurrence: US)
  Receive Date: 20140820
  Receipt Date: 20141001
  Transmission Date: 20150528
  Serious: Yes (Hospitalization)
  Sender: FDA-Public Use
  Company Number: US-PFIZER INC-2014221807

PATIENT
  Age: 77 Year
  Sex: Male

DRUGS (11)
  1. COUMADINE [Concomitant]
     Active Substance: WARFARIN SODIUM
     Dosage: 5 MG, DAILY
  2. ABIRATERONE ACETATE [Suspect]
     Active Substance: ABIRATERONE ACETATE
     Dosage: 1000 MG, DAILY
     Route: 048
     Dates: start: 20140108
  3. SIMVASTATIN. [Concomitant]
     Active Substance: SIMVASTATIN
     Dosage: 20 MG, DAILY
  4. CITRACAL + D [Concomitant]
     Active Substance: CALCIUM CITRATE\VITAMIN D
     Dosage: 1 DF (TABLET), DAILY
  5. LUPRON [Concomitant]
     Active Substance: LEUPROLIDE ACETATE
     Dosage: 30 MG, UNK
     Route: 030
  6. CHONDROITIN/GLUCOSAMINE [Concomitant]
     Dosage: 1500 MG, DAILY
     Route: 048
  7. SUNITINIB MALATE [Suspect]
     Active Substance: SUNITINIB MALATE
     Dosage: 25 MG, CYCLIC, 2 WEEKS ON AND 1 WEEK OFF
     Route: 048
     Dates: start: 20140403
  8. LASIX [Concomitant]
     Active Substance: FUROSEMIDE
     Dosage: 20 MG, DAILY
  9. BENAZEPRIL/HYDROCHLOROTHIAZIDE [Concomitant]
     Dosage: 20/25MG IN THE MORNING
  10. PREDNISONE. [Concomitant]
     Active Substance: PREDNISONE
     Dosage: 5 MG, DAILY
     Route: 048
  11. CENTRUM MULTIVITAMIN [Concomitant]
     Dosage: 1 DF (TABLET), DAILY

REACTIONS (1)
  - Syncope [Unknown]

NARRATIVE: CASE EVENT DATE: 20140724
